FAERS Safety Report 4876693-1 (Version None)
Quarter: 2006Q1

REPORT INFORMATION
  Report Type: 
  Country: None (occurrence: None)
  Receive Date: 20060110
  Receipt Date: 20050426
  Transmission Date: 20060701
  Serious: Yes (Hospitalization, Disabling)
  Sender: FDA-Public Use
  Company Number: US-MERCK-0504USA04836

PATIENT
  Age: 55 Year
  Sex: Male
  Weight: 84 kg

DRUGS (8)
  1. VIOXX [Suspect]
     Indication: ARTHRALGIA
     Route: 048
     Dates: start: 19991216, end: 20000126
  2. VIOXX [Suspect]
     Route: 048
     Dates: start: 20010426, end: 20010709
  3. VIOXX [Suspect]
     Route: 048
     Dates: start: 20020730, end: 20030115
  4. VIOXX [Suspect]
     Indication: BACK PAIN
     Route: 048
     Dates: start: 19991216, end: 20000126
  5. VIOXX [Suspect]
     Route: 048
     Dates: start: 20010426, end: 20010709
  6. VIOXX [Suspect]
     Route: 048
     Dates: start: 20020730, end: 20030115
  7. VALIUM [Concomitant]
     Route: 065
  8. VICODIN [Concomitant]
     Route: 065

REACTIONS (17)
  - ARTHRITIS [None]
  - ARTHROPATHY [None]
  - CORONARY ARTERY DISEASE [None]
  - COUGH [None]
  - FEELING ABNORMAL [None]
  - HYPERTENSION [None]
  - IMPINGEMENT SYNDROME [None]
  - INSOMNIA [None]
  - JOINT SPRAIN [None]
  - LIGAMENT INJURY [None]
  - LOBAR PNEUMONIA [None]
  - MYOCARDIAL INFARCTION [None]
  - PANIC ATTACK [None]
  - PULMONARY CONGESTION [None]
  - ROTATOR CUFF SYNDROME [None]
  - STOMACH DISCOMFORT [None]
  - WEIGHT INCREASED [None]
